APPROVED DRUG PRODUCT: EVALOSE
Active Ingredient: LACTULOSE
Strength: 10GM/15ML
Dosage Form/Route: SOLUTION;ORAL
Application: A073497 | Product #001
Applicant: TEVA PHARMACEUTICALS USA
Approved: May 28, 1993 | RLD: No | RS: No | Type: DISCN